FAERS Safety Report 21718618 (Version 1)
Quarter: 2022Q4

REPORT INFORMATION
  Report Type: Spontaneous
  Country: FR (occurrence: FR)
  Receive Date: 20221212
  Receipt Date: 20221212
  Transmission Date: 20230112
  Serious: Yes (Death)
  Sender: FDA-Public Use
  Company Number: None

PATIENT
  Age: 41 Year
  Sex: Female
  Weight: 58 kg

DRUGS (1)
  1. ACETAMINOPHEN [Suspect]
     Active Substance: ACETAMINOPHEN
     Indication: Gait disturbance
     Dosage: UNK, NON PR?CIS?
     Route: 048
     Dates: start: 202208, end: 20221121

REACTIONS (3)
  - Haemodynamic instability [Fatal]
  - Hepatitis fulminant [Fatal]
  - Overdose [Fatal]

NARRATIVE: CASE EVENT DATE: 20221122
